FAERS Safety Report 7759673-8 (Version None)
Quarter: 2011Q3

REPORT INFORMATION
  Report Type: 
  Country: None (occurrence: None)
  Receive Date: 20110919
  Receipt Date: 20110908
  Transmission Date: 20111222
  Serious: Yes (Other)
  Sender: FDA-Public Use
  Company Number: GB-JNJFOC-20110904130

PATIENT
  Age: 52 Year
  Sex: Female

DRUGS (1)
  1. TOPAMAX [Suspect]
     Indication: MIGRAINE PROPHYLAXIS
     Route: 048

REACTIONS (3)
  - BREAST CANCER [None]
  - HYPOAESTHESIA [None]
  - LIBIDO DECREASED [None]
